FAERS Safety Report 5106965-7 (Version None)
Quarter: 2006Q3

REPORT INFORMATION
  Report Type: 
  Country: None (occurrence: None)
  Receive Date: 20060913
  Receipt Date: 20060830
  Transmission Date: 20061208
  Serious: Yes (Hospitalization)
  Sender: FDA-Public Use
  Company Number: 229327

PATIENT
  Age: 70 Year
  Sex: Female
  Weight: 49 kg

DRUGS (10)
  1. RITUXAN [Suspect]
     Indication: NON-HODGKIN'S LYMPHOMA
     Dosage: 530 MG, INTRAVENOUS
     Route: 042
     Dates: start: 20050308, end: 20051011
  2. THERARUBICIN (PIRARUBICIN) [Suspect]
     Indication: NON-HODGKIN'S LYMPHOMA
     Dosage: 42 MG, INTRAVENOUS
     Route: 042
     Dates: start: 20050310, end: 20051013
  3. CYCLOPHOSPHAMIDE [Suspect]
     Indication: NON-HODGKIN'S LYMPHOMA
     Dosage: 700 MG, INTRAVENOUS
     Route: 042
     Dates: start: 20050310, end: 20051013
  4. ONCOVIN [Suspect]
     Indication: NON-HODGKIN'S LYMPHOMA
     Dosage: 1.4 MG, INTRAVENOUS
     Route: 042
     Dates: start: 20050310, end: 20051013
  5. PREDNISOLONE [Suspect]
     Indication: NON-HODGKIN'S LYMPHOMA
     Dosage: 40 MG, ORAL
     Route: 048
     Dates: start: 20050310, end: 20051013
  6. POLARAMINE [Concomitant]
  7. SELBEX (TEPRENONE) [Concomitant]
  8. SULFAMETHOXAZOLE + TRIMETHOPRIM [Concomitant]
  9. LANSOPRAZOLE [Concomitant]
  10. ISONIAZID [Concomitant]

REACTIONS (4)
  - ABDOMINAL DISTENSION [None]
  - DUODENAL STENOSIS [None]
  - NAUSEA [None]
  - VOMITING [None]
